FAERS Safety Report 9636033 (Version 2)
Quarter: 2013Q4

REPORT INFORMATION
  Report Type: Report from Study
  Country: AU (occurrence: AU)
  Receive Date: 20131021
  Receipt Date: 20131107
  Transmission Date: 20140711
  Serious: Yes (Other)
  Sender: FDA-Public Use
  Company Number: PHHY2013AU117962

PATIENT
  Sex: Female

DRUGS (4)
  1. ACLASTA [Suspect]
     Dosage: UNK
     Route: 042
     Dates: start: 20090929
  2. ACLASTA [Suspect]
     Dosage: UNK
     Route: 042
     Dates: start: 20100930
  3. ACLASTA [Suspect]
     Dosage: UNK
     Route: 042
     Dates: start: 20111006
  4. ACLASTA [Suspect]
     Dosage: UNK
     Route: 042
     Dates: start: 20120921

REACTIONS (2)
  - Renal cancer [Unknown]
  - Renal impairment [Unknown]
